FAERS Safety Report 4959608-7 (Version None)
Quarter: 2006Q1

REPORT INFORMATION
  Report Type: 
  Country: None (occurrence: None)
  Receive Date: 20060331
  Receipt Date: 20060317
  Transmission Date: 20060701
  Serious: Yes (Hospitalization)
  Sender: FDA-Public Use
  Company Number: US-ROCHE-441173

PATIENT
  Age: 45 Year
  Sex: Female
  Weight: 78.5 kg

DRUGS (2)
  1. ACCUTANE [Suspect]
     Dosage: DOSAGE REGIMEN REPORTED AS 20 - 40 MG EVERY DAY.
     Route: 048
     Dates: start: 19960615
  2. ACCUTANE [Suspect]
     Dosage: DOSAGE REGIMEN REPORTED AS 'VARIES'.
     Route: 048
     Dates: start: 19960615, end: 20050615

REACTIONS (3)
  - BLOOD CHOLESTEROL INCREASED [None]
  - CERVICAL VERTEBRAL FRACTURE [None]
  - ROAD TRAFFIC ACCIDENT [None]
